FAERS Safety Report 5839453-0 (Version None)
Quarter: 2008Q3

REPORT INFORMATION
  Report Type: 
  Country: None (occurrence: None)
  Receive Date: 20080807
  Receipt Date: 20080730
  Transmission Date: 20090109
  Serious: Yes (Other)
  Sender: FDA-Public Use
  Company Number: STI-2008-02509

PATIENT
  Sex: Male

DRUGS (1)
  1. DUAC [Suspect]
     Indication: PROPHYLAXIS
     Dosage: 4 IN 1 DAYS

REACTIONS (2)
  - HEPATITIS [None]
  - JAUNDICE [None]
